FAERS Safety Report 7513977-2 (Version None)
Quarter: 2011Q2

REPORT INFORMATION
  Report Type: 
  Country: None (occurrence: None)
  Receive Date: 20110531
  Receipt Date: 20110407
  Transmission Date: 20111010
  Serious: Yes (Hospitalization)
  Sender: FDA-Public Use
  Company Number: PHHY2011US29535

PATIENT
  Sex: Female

DRUGS (10)
  1. FEMARA [Suspect]
     Dosage: 2.5 MG, QD
  2. CYCLOBENZAPRINE [Concomitant]
     Dosage: 10 MG, TID
  3. METOPROLOL TARTRATE [Concomitant]
     Dosage: 25 MG, BID
  4. DIAZEPAM [Concomitant]
     Dosage: 5 MG, 3-4X DAY
  5. METFORMIN HCL [Concomitant]
     Dosage: 500 MG, TID
  6. WELLBUTRIN [Concomitant]
  7. WELLBUTRIN XL [Concomitant]
     Dosage: 300 MG, QD
  8. GABAPENTIN [Concomitant]
     Dosage: 300 MG, QD
  9. HYDRO-APAP [Concomitant]
  10. LUPRON [Concomitant]
     Dosage: 1XMONTH

REACTIONS (3)
  - PURULENCE [None]
  - POST PROCEDURAL INFECTION [None]
  - DEHYDRATION [None]
